FAERS Safety Report 23299965 (Version 2)
Quarter: 2023Q4

REPORT INFORMATION
  Report Type: Spontaneous
  Country: US (occurrence: US)
  Receive Date: 20231215
  Receipt Date: 20231220
  Transmission Date: 20240109
  Serious: No
  Sender: FDA-Public Use
  Company Number: US-LEO Pharma-365834

PATIENT
  Age: 40 Year
  Sex: Female

DRUGS (4)
  1. ADBRY [Suspect]
     Active Substance: TRALOKINUMAB-LDRM
     Indication: Product used for unknown indication
  2. ruxolitinib phosphate (Opzelura) [Concomitant]
     Indication: Product used for unknown indication
  3. loteprednol etabonate (Lotemax) [Concomitant]
     Indication: Product used for unknown indication
  4. ciclosporin (Restasis Multidose) [Concomitant]
     Indication: Product used for unknown indication

REACTIONS (3)
  - Drug ineffective [Unknown]
  - Symptom recurrence [Unknown]
  - Weight increased [Unknown]
